FAERS Safety Report 9396054 (Version 1)
Quarter: 2013Q3

REPORT INFORMATION
  Report Type: Spontaneous
  Country: FR (occurrence: FR)
  Receive Date: 20130711
  Receipt Date: 20130711
  Transmission Date: 20140515
  Serious: Yes (Life-Threatening, Hospitalization)
  Sender: FDA-Public Use
  Company Number: FR-ASTRAZENECA-2013SE51008

PATIENT
  Age: 3547 Week
  Sex: Male

DRUGS (7)
  1. CRESTOR [Suspect]
     Indication: PROPHYLAXIS
     Route: 048
     Dates: end: 201206
  2. CRESTOR [Suspect]
     Indication: PROPHYLAXIS
     Route: 048
     Dates: start: 201206, end: 20130603
  3. BIPRETERAX [Concomitant]
  4. ISOPTINE [Concomitant]
  5. PREVISCAN [Concomitant]
  6. TRIVASTAL [Concomitant]
  7. HEMIGOXINE [Concomitant]

REACTIONS (4)
  - Hepatitis cholestatic [Recovered/Resolved]
  - Weight decreased [Unknown]
  - Jaundice [Recovered/Resolved]
  - Hepatitis [Recovered/Resolved]
